FAERS Safety Report 15716763 (Version 2)
Quarter: 2019Q4

REPORT INFORMATION
  Report Type: Spontaneous
  Country: JP (occurrence: JP)
  Receive Date: 20181213
  Receipt Date: 20191023
  Transmission Date: 20200122
  Serious: Yes (Other)
  Sender: FDA-Public Use
  Company Number: JP-UCBSA-2018053673

PATIENT
  Age: 6 Year
  Sex: Female
  Weight: 20 kg

DRUGS (4)
  1. VIMPAT [Suspect]
     Active Substance: LACOSAMIDE
     Indication: EPILEPSY
     Dosage: 25MG DAILY
     Route: 048
  2. VIMPAT [Suspect]
     Active Substance: LACOSAMIDE
     Indication: FRONTAL LOBE EPILEPSY
     Dosage: 50MG DAILY
     Route: 048
  3. E KEPPRA [Concomitant]
     Active Substance: LEVETIRACETAM
     Indication: FRONTAL LOBE EPILEPSY
     Dosage: 1000 MILLIGRAM, DAILY
     Route: 048
  4. VIMPAT [Suspect]
     Active Substance: LACOSAMIDE
     Dosage: 100MG DAILY
     Route: 048

REACTIONS (2)
  - Off label use [Unknown]
  - Epilepsy [Unknown]
